FAERS Safety Report 5570472-8 (Version None)
Quarter: 2007Q4

REPORT INFORMATION
  Report Type: 
  Country: None (occurrence: None)
  Receive Date: 20071221
  Receipt Date: 20071031
  Transmission Date: 20080405
  Serious: No
  Sender: FDA-Public Use
  Company Number: US-BRISTOL-MYERS SQUIBB COMPANY-13928502

PATIENT
  Age: 72 Year
  Sex: Female
  Weight: 50 kg

DRUGS (19)
  1. ORENCIA [Suspect]
     Indication: RHEUMATOID ARTHRITIS
     Dosage: 2 DOSAGEFORM = 2 VIAL, 1ST INFUSION ON 01AUG07, 2ND ON 30AUG07, 3RD ON 20SEP07.
     Route: 042
     Dates: start: 20070718
  2. LYRICA [Concomitant]
  3. PANLOR [Concomitant]
  4. ARAVA [Concomitant]
     Route: 048
     Dates: start: 20070801, end: 20070918
  5. KLONOPIN [Concomitant]
  6. ULTRACET [Concomitant]
  7. AMITIZA [Concomitant]
  8. BONIVA [Concomitant]
  9. PROTONIX [Concomitant]
  10. LOTREL [Concomitant]
  11. MULTI-VITAMIN [Concomitant]
  12. VITAMIN D [Concomitant]
  13. VITAMIN B6 [Concomitant]
  14. CALCIUM [Concomitant]
  15. GLUCOSAMINE [Concomitant]
  16. PREMARIN [Concomitant]
     Route: 067
  17. BENEFIBER [Concomitant]
  18. DIOVAN [Concomitant]
  19. LEVOXYL [Concomitant]

REACTIONS (5)
  - ANAL DISCOMFORT [None]
  - BURNING SENSATION [None]
  - HYPOAESTHESIA [None]
  - PERIPHERAL COLDNESS [None]
  - VULVOVAGINAL BURNING SENSATION [None]
